FAERS Safety Report 10995418 (Version 1)
Quarter: 2015Q2

REPORT INFORMATION
  Report Type: Spontaneous
  Country: US (occurrence: US)
  Receive Date: 20150407
  Receipt Date: 20150407
  Transmission Date: 20150821
  Serious: Yes (Hospitalization)
  Sender: FDA-Public Use
  Company Number: US-BAYER-2015-099920

PATIENT
  Age: 31 Year
  Sex: Female

DRUGS (13)
  1. CYMBALTA [Concomitant]
     Active Substance: DULOXETINE HYDROCHLORIDE
     Dosage: 120 MG, QD
  2. BIAXIN [Concomitant]
     Active Substance: CLARITHROMYCIN
     Dosage: 500 MG, BID
  3. FOLIC ACID. [Concomitant]
     Active Substance: FOLIC ACID
  4. LEXAPRO [Concomitant]
     Active Substance: ESCITALOPRAM OXALATE
     Dosage: 20 MG, QD
  5. YAZ [Suspect]
     Active Substance: DROSPIRENONE\ETHINYL ESTRADIOL
  6. DILAUDID [Concomitant]
     Active Substance: HYDROMORPHONE HYDROCHLORIDE
     Indication: PAIN
     Dosage: 1 MG, EVERY 2 HOURS
  7. DIOVAN HCT [Concomitant]
     Active Substance: HYDROCHLOROTHIAZIDE\VALSARTAN
  8. METHADONE [Concomitant]
     Active Substance: METHADONE HYDROCHLORIDE
     Dosage: 10 MG, BID
  9. KLONOPIN [Concomitant]
     Active Substance: CLONAZEPAM
     Dosage: 0.25 MG, QD
  10. LEVOTHYROXINE [Concomitant]
     Active Substance: LEVOTHYROXINE
     Dosage: 0.025 MG, QD
  11. NEPHRO-VITE [VITAMINS NOS] [Concomitant]
     Dosage: 0.25 MG, QD
  12. VICODIN ES [Concomitant]
     Active Substance: ACETAMINOPHEN\HYDROCODONE BITARTRATE
     Dosage: BID
  13. OS-CAL+D [Concomitant]
     Dosage: 1000 MG, QD

REACTIONS (2)
  - Subclavian vein thrombosis [None]
  - Jugular vein thrombosis [None]

NARRATIVE: CASE EVENT DATE: 20090203
